FAERS Safety Report 12011174 (Version 1)
Quarter: 2016Q1

REPORT INFORMATION
  Report Type: Spontaneous
  Country: BR (occurrence: BR)
  Receive Date: 20160205
  Receipt Date: 20160205
  Transmission Date: 20160526
  Serious: Yes (Hospitalization, Other)
  Sender: FDA-Public Use
  Company Number: BR-ABBVIE-16P-020-1554239-00

PATIENT
  Age: 2 Year
  Sex: Male
  Weight: 16.5 kg

DRUGS (3)
  1. DEPAKENE [Suspect]
     Active Substance: VALPROIC ACID
     Dosage: DAILY DOSE: 10.5 ML; 5 AM, 1 PM AND 9 PM.
     Route: 048
     Dates: start: 201509
  2. DEPAKENE [Suspect]
     Active Substance: VALPROIC ACID
     Indication: FEBRILE CONVULSION
     Dosage: DAILY DOSE: 7.5 ML; AT 5 AM, 1 PM AND 9 PM
     Route: 048
     Dates: start: 20150730, end: 201509
  3. MARESIS [Concomitant]
     Indication: NASAL DECONGESTION THERAPY
     Dosage: ONLY WHEN PATIENT PRESENT RHINITIS CRISI
     Route: 045

REACTIONS (15)
  - Bacterial infection [Recovered/Resolved]
  - Pharyngitis [Recovered/Resolved]
  - Febrile convulsion [Recovered/Resolved]
  - Viral infection [Recovered/Resolved]
  - Febrile convulsion [Recovered/Resolved]
  - Febrile convulsion [Recovered/Resolved]
  - Pyrexia [Recovered/Resolved]
  - Pyrexia [Unknown]
  - Off label use [Unknown]
  - Febrile convulsion [Recovered/Resolved]
  - Pyrexia [Recovered/Resolved]
  - Pyrexia [Recovered/Resolved]
  - Aphthous ulcer [Recovered/Resolved]
  - Bacterial infection [Unknown]
  - Drug administered to patient of inappropriate age [Unknown]

NARRATIVE: CASE EVENT DATE: 20150822
